FAERS Safety Report 6194413-8 (Version None)
Quarter: 2009Q2

REPORT INFORMATION
  Report Type: 
  Country: None (occurrence: None)
  Receive Date: 20090519
  Receipt Date: 20090504
  Transmission Date: 20091009
  Serious: Yes (Other)
  Sender: FDA-Public Use
  Company Number: DE-BAYER-200920897GPV

PATIENT
  Age: 35 Year
  Sex: Female

DRUGS (1)
  1. EXTAVIA (INTERFERON BETA-1B [INTERFERON BETA-1B] [Suspect]
     Indication: DRUG USE FOR UNKNOWN INDICATION
     Route: 058
     Dates: start: 20090301

REACTIONS (3)
  - DIARRHOEA [None]
  - INTRA-ABDOMINAL HAEMATOMA [None]
  - NAUSEA [None]
